FAERS Safety Report 14671059 (Version 1)
Quarter: 2018Q1

REPORT INFORMATION
  Report Type: Spontaneous
  Country: US (occurrence: US)
  Receive Date: 20180322
  Receipt Date: 20180322
  Transmission Date: 20180509
  Serious: Yes (Hospitalization)
  Sender: FDA-Public Use
  Company Number: None

PATIENT
  Age: 76 Year
  Sex: Female

DRUGS (22)
  1. VITAMIN D3 [Concomitant]
     Active Substance: CHOLECALCIFEROL
  2. ERYTHROMYCIN. [Concomitant]
     Active Substance: ERYTHROMYCIN
  3. PREDNISONE. [Concomitant]
     Active Substance: PREDNISONE
  4. RESTORIL [Concomitant]
     Active Substance: TEMAZEPAM
  5. LACTAID [Concomitant]
     Active Substance: LACTASE
  6. ALLOPURINOL. [Concomitant]
     Active Substance: ALLOPURINOL
  7. KENALOG [Concomitant]
     Active Substance: TRIAMCINOLONE ACETONIDE
  8. RESTASIS [Concomitant]
     Active Substance: CYCLOSPORINE
  9. MONTELUKAST [Concomitant]
     Active Substance: MONTELUKAST SODIUM
  10. FAMOTIDINE. [Concomitant]
     Active Substance: FAMOTIDINE
  11. SPIRENOLACT [Concomitant]
  12. SPRYCEL [Suspect]
     Active Substance: DASATINIB
     Indication: CHRONIC KIDNEY DISEASE
     Route: 048
     Dates: start: 2003
  13. VENTOLIN HFA [Concomitant]
     Active Substance: ALBUTEROL SULFATE
  14. VALSARTAN. [Concomitant]
     Active Substance: VALSARTAN
  15. SYNTHROID [Concomitant]
     Active Substance: LEVOTHYROXINE SODIUM
  16. CLONAZEPAM. [Concomitant]
     Active Substance: CLONAZEPAM
  17. XANAX [Concomitant]
     Active Substance: ALPRAZOLAM
  18. BENADRYL [Concomitant]
     Active Substance: DIPHENHYDRAMINE HYDROCHLORIDE
  19. IMODIUM A-D [Concomitant]
     Active Substance: LOPERAMIDE HYDROCHLORIDE
  20. ZYRTEC [Concomitant]
     Active Substance: CETIRIZINE HYDROCHLORIDE
  21. FLUTICASONE. [Concomitant]
     Active Substance: FLUTICASONE
  22. ADVAIR HFA [Concomitant]
     Active Substance: FLUTICASONE PROPIONATE\SALMETEROL XINAFOATE

REACTIONS (2)
  - Nonspecific reaction [None]
  - Oedema [None]

NARRATIVE: CASE EVENT DATE: 201802
